FAERS Safety Report 10855090 (Version 1)
Quarter: 2015Q1

REPORT INFORMATION
  Report Type: Spontaneous
  Country: FR (occurrence: None)
  Receive Date: 20150218
  Receipt Date: 20150218
  Transmission Date: 20150721
  Serious: Yes (Hospitalization)
  Sender: FDA-Public Use
  Company Number: IPC201502-000075

PATIENT
  Age: 79 Year
  Sex: Male

DRUGS (9)
  1. METFORMIN HYDROCHLORIDE (METFORMIN HYDROCHLORIDE) [Suspect]
     Active Substance: METFORMIN HYDROCHLORIDE
     Indication: TYPE 2 DIABETES MELLITUS
  2. ATORVASTATIN (ATORVASTATIN) [Concomitant]
     Active Substance: ATORVASTATIN
  3. POTASSIUM (POTASSIUM) [Concomitant]
     Active Substance: POTASSIUM
  4. GLICLAZIDE (GLICLAZIDE) [Concomitant]
     Active Substance: GLICLAZIDE
  5. VILDAGLIPTIN [Suspect]
     Active Substance: VILDAGLIPTIN
     Indication: TYPE 2 DIABETES MELLITUS
  6. FLUINDIONE (FLUINDIONE) [Concomitant]
     Active Substance: FLUINDIONE
  7. ERGOCALCIFEROL (ERGOCALCIFEROL) [Concomitant]
     Active Substance: ERGOCALCIFEROL
  8. ALLOPURINOL (ALLOPURINOL) [Concomitant]
     Active Substance: ALLOPURINOL
  9. VITAMIN B12 [Concomitant]
     Active Substance: CYANOCOBALAMIN

REACTIONS (2)
  - Pemphigoid [None]
  - Eosinophilia [None]
